FAERS Safety Report 26034364 (Version 2)
Quarter: 2025Q4

REPORT INFORMATION
  Report Type: Report from Study
  Country: US (occurrence: US)
  Receive Date: 20251112
  Receipt Date: 20251128
  Transmission Date: 20260118
  Serious: No
  Sender: MERCK SHARP & DOHME LLC
  Company Number: US-009507513-2341540

PATIENT
  Age: 38 Year
  Sex: Female
  Weight: 74.389 kg

DRUGS (18)
  1. WINREVAIR [Suspect]
     Active Substance: SOTATERCEPT-CSRK
     Indication: Pulmonary arterial hypertension
     Dosage: 1 ML EVERY 3 WEEKS SQ
     Route: 058
     Dates: start: 20251009
  2. WINREVAIR [Suspect]
     Active Substance: SOTATERCEPT-CSRK
  3. WINREVAIR [Suspect]
     Active Substance: SOTATERCEPT-CSRK
  4. WINREVAIR [Suspect]
     Active Substance: SOTATERCEPT-CSRK
  5. MACITENTAN\TADALAFIL [Concomitant]
     Active Substance: MACITENTAN\TADALAFIL
  6. STERILE DILUENT FOR REMODULIN [Concomitant]
     Active Substance: WATER
  7. REMODULIN [Suspect]
     Active Substance: TREPROSTINIL
     Indication: Pulmonary arterial hypertension
     Dosage: CONCENTRATION 2.5 MG/ML; FREQUENCY: CONTINUING
     Route: 042
     Dates: start: 202508, end: 202508
  8. REMODULIN [Suspect]
     Active Substance: TREPROSTINIL
     Indication: Pulmonary arterial hypertension
     Dosage: FREQUENCY: CONTINUING
     Route: 042
     Dates: start: 202508, end: 202508
  9. REMODULIN [Suspect]
     Active Substance: TREPROSTINIL
     Indication: Pulmonary arterial hypertension
     Dosage: FREQUENCY: CONTINUING
     Route: 042
     Dates: start: 202508, end: 202508
  10. REMODULIN [Suspect]
     Active Substance: TREPROSTINIL
     Indication: Pulmonary arterial hypertension
     Dosage: FREQUENCY: CONTINUING
     Route: 042
     Dates: start: 202508
  11. REMODULIN [Suspect]
     Active Substance: TREPROSTINIL
     Indication: Pulmonary arterial hypertension
     Dosage: FREQUENCY: CONTINUING
     Route: 042
     Dates: start: 2025
  12. REMODULIN [Suspect]
     Active Substance: TREPROSTINIL
     Indication: Pulmonary arterial hypertension
     Dosage: 1.4 MG, 20 ML; FREQUENCY: CONTINUING
     Route: 042
     Dates: start: 2025
  13. REMODULIN [Suspect]
     Active Substance: TREPROSTINIL
     Indication: Pulmonary arterial hypertension
     Dosage: FREQUENCY: CONTINUING
     Route: 042
     Dates: start: 2025
  14. REMODULIN [Suspect]
     Active Substance: TREPROSTINIL
     Indication: Pulmonary arterial hypertension
     Dosage: FREQUENCY: CONTINUING
     Route: 042
     Dates: start: 2025
  15. REMODULIN [Suspect]
     Active Substance: TREPROSTINIL
     Indication: Pulmonary arterial hypertension
     Dosage: FREQUENCY: CONTINUING
     Route: 042
     Dates: start: 2025
  16. REMODULIN [Suspect]
     Active Substance: TREPROSTINIL
     Indication: Pulmonary arterial hypertension
     Dosage: FREQUENCY: CONTINUING
     Route: 042
     Dates: start: 2025
  17. REMODULIN [Suspect]
     Active Substance: TREPROSTINIL
     Indication: Pulmonary arterial hypertension
     Dosage: FREQUENCY: CONTINUING
     Route: 042
     Dates: start: 202508
  18. OXYCODONE HYDROCHLORIDE [Concomitant]
     Active Substance: OXYCODONE HYDROCHLORIDE

REACTIONS (5)
  - Pyrexia [Unknown]
  - Rash [Recovered/Resolved]
  - Diarrhoea [Recovered/Resolved]
  - Epistaxis [Recovered/Resolved]
  - Headache [Recovered/Resolved]

NARRATIVE: CASE EVENT DATE: 20251001
